FAERS Safety Report 21541027 (Version 1)
Quarter: 2022Q4

REPORT INFORMATION
  Report Type: Spontaneous
  Country: US (occurrence: US)
  Receive Date: 20221102
  Receipt Date: 20221102
  Transmission Date: 20230112
  Serious: Yes (Disabling)
  Sender: FDA-Public Use
  Company Number: US-ORGANON-O2210USA002496

PATIENT
  Sex: Male

DRUGS (1)
  1. SINGULAIR [Suspect]
     Active Substance: MONTELUKAST SODIUM
     Dosage: UNK
     Route: 048
     Dates: start: 2009, end: 2012

REACTIONS (2)
  - Neuropsychiatric symptoms [Not Recovered/Not Resolved]
  - Tic [Not Recovered/Not Resolved]
